FAERS Safety Report 4584063-9 (Version None)
Quarter: 2005Q1

REPORT INFORMATION
  Report Type: 
  Country: None (occurrence: None)
  Receive Date: 20050125
  Receipt Date: 20041029
  Transmission Date: 20050727
  Serious: No
  Sender: FDA-Public Use
  Company Number: USA041182722

PATIENT
  Age: 70 Year
  Sex: Female

DRUGS (9)
  1. FORTEO [Suspect]
     Indication: OSTEOPOROSIS
     Dates: start: 20041028
  2. PREVACID [Concomitant]
  3. VALIUM [Concomitant]
  4. ZETIA [Concomitant]
  5. PLAVIX [Concomitant]
  6. PEPCID COMPLETE (FAMOTIDINE) [Concomitant]
  7. CENTRUM [Concomitant]
  8. VITAMIN E [Concomitant]
  9. PROMETHAZINE [Concomitant]

REACTIONS (6)
  - ABDOMINAL RIGIDITY [None]
  - ARTHRALGIA [None]
  - BACK PAIN [None]
  - BUTTOCK PAIN [None]
  - INJECTION SITE ERYTHEMA [None]
  - PAIN IN EXTREMITY [None]
